FAERS Safety Report 8975890 (Version 1)
Quarter: 2012Q4

REPORT INFORMATION
  Report Type: 
  Country: US (occurrence: US)
  Receive Date: 20121219
  Receipt Date: 20121219
  Transmission Date: 20130627
  Serious: Yes (Death, Hospitalization)
  Sender: FDA-Public Use
  Company Number: US-GLAXOSMITHKLINE-A1005720A

PATIENT
  Age: 54 Year
  Sex: Female

DRUGS (1)
  1. ADVAIR [Suspect]
     Indication: OBLITERATIVE BRONCHIOLITIS
     Dosage: 1PUFF Twice per day
     Route: 055

REACTIONS (2)
  - Death [Fatal]
  - Cardiac arrest [Unknown]
